FAERS Safety Report 10518822 (Version 1)
Quarter: 2014Q4

REPORT INFORMATION
  Report Type: Spontaneous
  Country: US (occurrence: None)
  Receive Date: 20141014
  Receipt Date: 20141014
  Transmission Date: 20150528
  Serious: No
  Sender: FDA-Public Use
  Company Number: None

PATIENT
  Age: 81 Year
  Sex: Male

DRUGS (14)
  1. LOSARTAN [Concomitant]
     Active Substance: LOSARTAN
  2. ATENOLOL. [Concomitant]
     Active Substance: ATENOLOL
  3. ATORVASTATIN [Concomitant]
     Active Substance: ATORVASTATIN
  4. CEPHALEXIN. [Concomitant]
     Active Substance: CEPHALEXIN
  5. LORTAB [Concomitant]
     Active Substance: ACETAMINOPHEN\HYDROCODONE BITARTRATE
  6. AMLODIPINE [Concomitant]
     Active Substance: AMLODIPINE BESYLATE
  7. ASPIRIN. [Concomitant]
     Active Substance: ASPIRIN
  8. CYANOCOBALAMIN. [Concomitant]
     Active Substance: CYANOCOBALAMIN
  9. DOXYCYCLINE. [Concomitant]
     Active Substance: DOXYCYCLINE
  10. TARCEVA [Suspect]
     Active Substance: ERLOTINIB HYDROCHLORIDE
     Indication: NEOPLASM MALIGNANT
     Dosage: 1 TABLET QD ORAL
     Route: 048
     Dates: start: 20140918, end: 20141013
  11. TARCEVA [Concomitant]
     Active Substance: ERLOTINIB HYDROCHLORIDE
  12. GABAPENTIN. [Concomitant]
     Active Substance: GABAPENTIN
  13. FENTANYL. [Concomitant]
     Active Substance: FENTANYL
  14. MAXAIR [Concomitant]
     Active Substance: PIRBUTEROL ACETATE

REACTIONS (1)
  - Nausea [None]

NARRATIVE: CASE EVENT DATE: 20141013
